FAERS Safety Report 24143151 (Version 1)
Quarter: 2024Q3

REPORT INFORMATION
  Report Type: Spontaneous
  Country: HR (occurrence: HR)
  Receive Date: 20240726
  Receipt Date: 20240726
  Transmission Date: 20241016
  Serious: Yes (Hospitalization, Other)
  Sender: ABBVIE
  Company Number: HR-ABBVIE-5502246

PATIENT
  Age: 28 Year
  Sex: Female

DRUGS (2)
  1. RINVOQ [Suspect]
     Active Substance: UPADACITINIB
     Indication: Dermatitis atopic
     Dosage: 15 MILLIGRAM
     Route: 048
     Dates: start: 202206, end: 202211
  2. RINVOQ [Suspect]
     Active Substance: UPADACITINIB
     Indication: Dermatitis atopic
     Dosage: 30 MILLIGRAM
     Route: 048
     Dates: start: 202211, end: 20231107

REACTIONS (6)
  - Amniorrhoea [Recovered/Resolved]
  - Maternal exposure during pregnancy [Unknown]
  - Investigation abnormal [Unknown]
  - Dermatitis atopic [Unknown]
  - Premature delivery [Unknown]
  - Live birth [Unknown]

NARRATIVE: CASE EVENT DATE: 20240601
